FAERS Safety Report 13875954 (Version 3)
Quarter: 2017Q4

REPORT INFORMATION
  Report Type: Report from Study
  Country: US (occurrence: US)
  Receive Date: 20170817
  Receipt Date: 20171109
  Transmission Date: 20180320
  Serious: No
  Sender: FDA-Public Use
  Company Number: PHEH2017US026049

PATIENT
  Sex: Male
  Weight: 17 kg

DRUGS (2)
  1. ILARIS [Suspect]
     Active Substance: CANAKINUMAB
     Dosage: 40 MG, EVERY 4 WEEKS
     Route: 058
  2. ILARIS [Suspect]
     Active Substance: CANAKINUMAB
     Indication: CRYOPYRIN ASSOCIATED PERIODIC SYNDROME
     Dosage: 30 MG, UNK
     Route: 058
     Dates: start: 201704

REACTIONS (3)
  - Drug administered to patient of inappropriate age [Unknown]
  - Weight increased [Unknown]
  - Incorrect dose administered [Unknown]
